FAERS Safety Report 8811045 (Version 1)
Quarter: 2012Q4

REPORT INFORMATION
  Report Type: Spontaneous
  Country: US (occurrence: None)
  Receive Date: 20120924
  Receipt Date: 20120924
  Transmission Date: 20130627
  Serious: Yes (Other)
  Sender: FDA-Public Use
  Company Number: DKLU1084028

PATIENT
  Age: 12 Month
  Sex: Female

DRUGS (4)
  1. SABRIL [Suspect]
     Indication: EPILEPSY
     Route: 048
     Dates: start: 20120801
  2. PREDNISONE (PREDNISONE) [Concomitant]
  3. CLONAZEPAM (CLONAZEPAM) [Concomitant]
  4. RANITIDINE (RANITIDINE) [Concomitant]

REACTIONS (4)
  - Upper respiratory tract infection [None]
  - Febrile convulsion [None]
  - Convulsion [None]
  - Dysphagia [None]
